FAERS Safety Report 10128506 (Version 1)
Quarter: 2014Q2

REPORT INFORMATION
  Report Type: Spontaneous
  Country: GR (occurrence: GR)
  Receive Date: 20140428
  Receipt Date: 20140428
  Transmission Date: 20141212
  Serious: Yes (Other)
  Sender: FDA-Public Use
  Company Number: GR-ROCHE-1391362

PATIENT
  Age: 64 Year
  Sex: Female

DRUGS (1)
  1. MABTHERA [Suspect]
     Indication: RHEUMATOID ARTHRITIS
     Dosage: 2 BOTTLES
     Route: 065

REACTIONS (2)
  - Brain injury [Not Recovered/Not Resolved]
  - Memory impairment [Not Recovered/Not Resolved]
